FAERS Safety Report 7300808-9 (Version None)
Quarter: 2011Q1

REPORT INFORMATION
  Report Type: 
  Country: None (occurrence: None)
  Receive Date: 20110218
  Receipt Date: 20110128
  Transmission Date: 20110831
  Serious: Yes (Death, Other)
  Sender: FDA-Public Use
  Company Number: US-BAXTER-2011BH003799

PATIENT

DRUGS (12)
  1. VINBLASTINE [Suspect]
     Indication: ACCIDENTAL EXPOSURE
     Route: 064
  2. PROPOFOL [Suspect]
     Indication: ACCIDENTAL EXPOSURE
     Route: 064
  3. AMPHOTERICINE B, LIPOSOME [Concomitant]
     Indication: ACCIDENTAL EXPOSURE
     Route: 064
  4. VINCRISTINE SULFATE [Suspect]
     Indication: ACCIDENTAL EXPOSURE
     Route: 064
  5. DACARBAZINE [Suspect]
     Indication: ACCIDENTAL EXPOSURE
     Route: 064
  6. ENOXAPARIN SODIUM [Concomitant]
     Indication: ACCIDENTAL EXPOSURE
     Route: 064
  7. CYCLOPHOSPHAMIDE [Suspect]
     Indication: ACCIDENTAL EXPOSURE
     Route: 064
  8. MIDAZOLAM [Concomitant]
     Indication: ACCIDENTAL EXPOSURE
     Route: 064
  9. DOXORUBICIN GENERIC [Suspect]
     Indication: ACCIDENTAL EXPOSURE
     Route: 064
  10. FENTANYL [Concomitant]
     Indication: ACCIDENTAL EXPOSURE
     Route: 064
  11. PIPERACILLIN AND TAZOBACTAM [Concomitant]
     Indication: ACCIDENTAL EXPOSURE
     Route: 064
  12. LINEZOLID [Concomitant]
     Indication: ACCIDENTAL EXPOSURE
     Route: 064

REACTIONS (4)
  - DRUG EXPOSURE DURING PREGNANCY [None]
  - INTRA-UTERINE DEATH [None]
  - FOETAL GROWTH RESTRICTION [None]
  - OLIGOHYDRAMNIOS [None]
